APPROVED DRUG PRODUCT: CIPROFLOXACIN HYDROCHLORIDE
Active Ingredient: CIPROFLOXACIN HYDROCHLORIDE
Strength: EQ 0.3% BASE
Dosage Form/Route: SOLUTION/DROPS;OPHTHALMIC
Application: A076754 | Product #001
Applicant: THE J MOLNER CO OU
Approved: Jun 9, 2004 | RLD: No | RS: No | Type: DISCN